FAERS Safety Report 25979849 (Version 1)
Quarter: 2025Q4

REPORT INFORMATION
  Report Type: Spontaneous
  Country: US (occurrence: None)
  Receive Date: 20251029
  Receipt Date: 20251029
  Transmission Date: 20260118
  Serious: No
  Sender: FDA-CTU
  Company Number: None

PATIENT
  Age: 36 Year
  Sex: Female

DRUGS (3)
  1. ZURZUVAE [Suspect]
     Active Substance: ZURANOLONE
     Indication: Perinatal depression
     Dosage: FREQUENCY : AT BEDTIME;?
     Route: 048
     Dates: start: 20251004, end: 20251006
  2. LACOSAMIDE [Concomitant]
     Active Substance: LACOSAMIDE
  3. OXTELLAR XR [Concomitant]
     Active Substance: OXCARBAZEPINE

REACTIONS (8)
  - Tremor [None]
  - Electric shock sensation [None]
  - Electric shock sensation [None]
  - Epilepsy [None]
  - Therapy cessation [None]
  - Fatigue [None]
  - Confusional state [None]
  - Disturbance in attention [None]

NARRATIVE: CASE EVENT DATE: 20251006
